FAERS Safety Report 5288262-2 (Version None)
Quarter: 2007Q1

REPORT INFORMATION
  Report Type: 
  Country: None (occurrence: None)
  Receive Date: 20070330
  Receipt Date: 20070315
  Transmission Date: 20070707
  Serious: Yes (Other)
  Sender: FDA-Public Use
  Company Number: 238469

PATIENT
  Age: 56 Year
  Sex: Female
  Weight: 62 kg

DRUGS (14)
  1. HERCEPTIN [Suspect]
     Indication: BREAST CANCER
     Dosage: SEE IMAGE
     Route: 042
     Dates: start: 20040618, end: 20050608
  2. GABAPENTIN [Concomitant]
  3. MANEVAC (PSYLLIUM HUSK, SENNA) [Concomitant]
  4. ACETAMINOPHEN [Concomitant]
  5. DIHYDROCODEINE TARTRATE (DIHYDROCODEINE BITARTRATE) [Concomitant]
  6. TEMAZEPAM [Concomitant]
  7. CLONIDINE [Concomitant]
  8. METFORMIN HCL [Concomitant]
  9. GLICLAZIDE (GLICLAZIDE) [Concomitant]
  10. AMITRIPTYLINE HCL [Concomitant]
  11. SALBUTAMOL (ALBUTEROL/ALBUTEROL SULFATE) [Concomitant]
  12. BETAMETHASONE [Concomitant]
  13. SALMETEROL (SALMETEROL) [Concomitant]
  14. ATORVASTATIN (ATORVASTATIN CALCIUM) [Concomitant]

REACTIONS (5)
  - CARDIAC FAILURE [None]
  - LYMPHOCYTE COUNT DECREASED [None]
  - MALAISE [None]
  - MYOCARDIAL INFARCTION [None]
  - SINUS TACHYCARDIA [None]
